FAERS Safety Report 14062761 (Version 1)
Quarter: 2017Q4

REPORT INFORMATION
  Report Type: Spontaneous
  Country: LV (occurrence: LV)
  Receive Date: 20171009
  Receipt Date: 20171009
  Transmission Date: 20180321
  Serious: Yes (Other)
  Sender: FDA-Public Use
  Company Number: LV-BAYER-2016-227098

PATIENT
  Age: 30 Year
  Sex: Female

DRUGS (1)
  1. FLEREE [Suspect]
     Active Substance: LEVONORGESTREL
     Indication: CONTRACEPTION
     Dosage: 14 MCG/24HR, CONT
     Route: 015
     Dates: start: 201603, end: 20161121

REACTIONS (4)
  - Drug ineffective [None]
  - Device expulsion [None]
  - Pregnancy with contraceptive device [Recovered/Resolved]
  - Bone cancer [Not Recovered/Not Resolved]

NARRATIVE: CASE EVENT DATE: 2016
